FAERS Safety Report 7652728-8 (Version None)
Quarter: 2011Q3

REPORT INFORMATION
  Report Type: 
  Country: None (occurrence: None)
  Receive Date: 20110728
  Receipt Date: 20110714
  Transmission Date: 20111222
  Serious: Yes (Disabling)
  Sender: FDA-Public Use
  Company Number: 2011-2068

PATIENT
  Age: 16 Year
  Sex: Male

DRUGS (1)
  1. DYSPORT [Suspect]
     Indication: HYPERHIDROSIS
     Dosage: 200 UNITS (200 UNITS, SINGLE CYCLE), SUBCUTANEOUS
     Route: 058
     Dates: start: 20101101, end: 20101101

REACTIONS (2)
  - MUSCLE TIGHTNESS [None]
  - PAIN IN EXTREMITY [None]
